FAERS Safety Report 25234396 (Version 3)
Quarter: 2025Q2

REPORT INFORMATION
  Report Type: Spontaneous
  Country: FR (occurrence: FR)
  Receive Date: 20250424
  Receipt Date: 20250609
  Transmission Date: 20250716
  Serious: Yes (Hospitalization)
  Sender: Kenvue
  Company Number: FR-JNJFOC-20241277860

PATIENT

DRUGS (13)
  1. LOPERAMIDE HYDROCHLORIDE [Suspect]
     Active Substance: LOPERAMIDE HYDROCHLORIDE
     Indication: Product used for unknown indication
     Route: 065
  2. UPTRAVI [Suspect]
     Active Substance: SELEXIPAG
     Indication: Pulmonary arterial hypertension
     Dosage: THERAPY START DATE :30-NOV-2024
     Route: 048
     Dates: start: 20241130
  3. UPTRAVI [Suspect]
     Active Substance: SELEXIPAG
     Dosage: THERAPY START DATE:13-DEC-2024
     Route: 048
     Dates: start: 20241213
  4. UPTRAVI [Suspect]
     Active Substance: SELEXIPAG
     Dosage: THERAPY START DATE:29-DEC-2024
     Route: 048
     Dates: start: 20241229
  5. UPTRAVI [Suspect]
     Active Substance: SELEXIPAG
     Dosage: THERAPY START DATE :23-JAN-2025
     Route: 048
     Dates: start: 20250123
  6. UPTRAVI [Suspect]
     Active Substance: SELEXIPAG
     Dosage: THERAPY START DATE:06-FEB-2025
     Route: 048
     Dates: start: 20250206
  7. UPTRAVI [Suspect]
     Active Substance: SELEXIPAG
     Dosage: THERAPY START DATE :20-FEB-2025
     Route: 048
     Dates: start: 20250220
  8. UPTRAVI [Suspect]
     Active Substance: SELEXIPAG
     Dosage: THERAPY START DATE :14-NOV-2024
     Route: 048
     Dates: start: 20241114
  9. UPTRAVI [Suspect]
     Active Substance: SELEXIPAG
     Dosage: THERAPY START DATE :06-MAR-2025
     Route: 048
     Dates: start: 20250306
  10. METFORMIN PAMOATE [Suspect]
     Active Substance: METFORMIN PAMOATE
     Indication: Product used for unknown indication
     Route: 065
  11. BOSENTAN [Concomitant]
     Active Substance: BOSENTAN
     Indication: Heritable pulmonary arterial hypertension
     Route: 065
  12. SILDENAFIL [Concomitant]
     Active Substance: SILDENAFIL
     Indication: Heritable pulmonary arterial hypertension
     Route: 065
  13. SMECTA [Concomitant]
     Active Substance: MONTMORILLONITE
     Indication: Product used for unknown indication
     Route: 065

REACTIONS (16)
  - Catheterisation cardiac [Unknown]
  - Headache [Not Recovered/Not Resolved]
  - Decreased appetite [Not Recovered/Not Resolved]
  - Fatigue [Not Recovered/Not Resolved]
  - Myalgia [Not Recovered/Not Resolved]
  - Diarrhoea [Recovered/Resolved]
  - Dyspnoea [Recovering/Resolving]
  - Headache [Not Recovered/Not Resolved]
  - Myalgia [Recovered/Resolved]
  - Nasopharyngitis [Not Recovered/Not Resolved]
  - Cough [Not Recovered/Not Resolved]
  - Insomnia [Not Recovered/Not Resolved]
  - Hot flush [Not Recovered/Not Resolved]
  - Parosmia [Recovering/Resolving]
  - Nausea [Recovering/Resolving]
  - Pain in jaw [Not Recovered/Not Resolved]

NARRATIVE: CASE EVENT DATE: 20240101
